FAERS Safety Report 16264496 (Version 3)
Quarter: 2019Q2

REPORT INFORMATION
  Report Type: Spontaneous
  Country: US (occurrence: US)
  Receive Date: 20190502
  Receipt Date: 20190528
  Transmission Date: 20190711
  Serious: No
  Sender: FDA-Public Use
  Company Number: US-PFIZER INC-2016040558

PATIENT
  Age: 67 Year
  Sex: Female

DRUGS (3)
  1. CELEBREX [Suspect]
     Active Substance: CELECOXIB
     Indication: GASTRITIS
     Dosage: 200 MG, 1X/DAY (QAM WITH FOOD)
     Dates: start: 20150527
  2. CELEBREX [Suspect]
     Active Substance: CELECOXIB
     Indication: HEMIPLEGIA
     Dosage: 200 MG, AS NEEDED (QAM WITH FOOD)
     Dates: start: 20170202
  3. CELEBREX [Suspect]
     Active Substance: CELECOXIB
     Indication: CEREBROVASCULAR ACCIDENT
     Dosage: 200 MG, DAILY

REACTIONS (3)
  - Off label use [Unknown]
  - Product use in unapproved indication [Unknown]
  - Pain [Unknown]

NARRATIVE: CASE EVENT DATE: 20150527
